FAERS Safety Report 19697741 (Version 3)
Quarter: 2021Q3

REPORT INFORMATION
  Report Type: Report from Study
  Country: None (occurrence: CA)
  Receive Date: 20210812
  Receipt Date: 20210826
  Transmission Date: 20211014
  Serious: No
  Sender: FDA-Public Use
  Company Number: CA-ABBVIE-21K-028-4033112-00

PATIENT
  Age: 33 Year
  Sex: Male

DRUGS (1)
  1. SKYRIZI [Suspect]
     Active Substance: RISANKIZUMAB-RZAA
     Indication: PSORIASIS
     Route: 058
     Dates: start: 20210720

REACTIONS (12)
  - Head discomfort [Recovered/Resolved]
  - Tinnitus [Unknown]
  - Headache [Recovered/Resolved]
  - Psoriasis [Recovered/Resolved]
  - Illness [Recovered/Resolved]
  - Scab [Recovered/Resolved]
  - Hypersomnia [Recovered/Resolved]
  - Head discomfort [Unknown]
  - Headache [Not Recovered/Not Resolved]
  - Asthenia [Recovered/Resolved]
  - Poor quality sleep [Recovered/Resolved]
  - Fatigue [Recovered/Resolved]

NARRATIVE: CASE EVENT DATE: 202107
